FAERS Safety Report 24436432 (Version 1)
Quarter: 2024Q4

REPORT INFORMATION
  Report Type: Report from Study
  Country: IT (occurrence: IT)
  Receive Date: 20241015
  Receipt Date: 20241015
  Transmission Date: 20250114
  Serious: Yes (Other)
  Sender: JOHNSON AND JOHNSON
  Company Number: IT-JNJFOC-20241027346

PATIENT

DRUGS (2)
  1. REMICADE [Suspect]
     Active Substance: INFLIXIMAB
     Indication: Crohn^s disease
     Route: 041
  2. REMICADE [Suspect]
     Active Substance: INFLIXIMAB
     Indication: Colitis ulcerative

REACTIONS (12)
  - Anaphylactic reaction [Unknown]
  - Surgery [Unknown]
  - Myalgia [Unknown]
  - Arthralgia [Unknown]
  - Pain [Unknown]
  - Rash [Unknown]
  - Injection site reaction [Unknown]
  - Malaise [Unknown]
  - Asthenia [Unknown]
  - Erythema [Unknown]
  - Swelling [Unknown]
  - Off label use [Unknown]
